FAERS Safety Report 24253070 (Version 2)
Quarter: 2024Q3

REPORT INFORMATION
  Report Type: Spontaneous
  Country: US (occurrence: US)
  Receive Date: 20240827
  Receipt Date: 20240903
  Transmission Date: 20241017
  Serious: Yes (Hospitalization, Other)
  Sender: AMGEN
  Company Number: US-AMGEN-USASP2024166327

PATIENT
  Age: 76 Year
  Sex: Female

DRUGS (5)
  1. PROLIA [Suspect]
     Active Substance: DENOSUMAB
     Indication: Osteoporosis postmenopausal
     Dosage: UNK, Q6MO
     Route: 065
     Dates: start: 2022
  2. CALCIUM CITRATE [Concomitant]
     Active Substance: CALCIUM CITRATE
  3. CITRULLINE [Concomitant]
     Active Substance: CITRULLINE
     Indication: Sleep disorder
  4. XARELTO [Concomitant]
     Active Substance: RIVAROXABAN
  5. COVID-19 vaccine [Concomitant]

REACTIONS (11)
  - Arthropathy [Unknown]
  - Diverticulitis [Unknown]
  - Gingival swelling [Unknown]
  - Gingival pain [Unknown]
  - Stomatitis [Unknown]
  - Back disorder [Unknown]
  - Inflammation [Unknown]
  - Large intestine polyp [Unknown]
  - COVID-19 [Unknown]
  - Skin fissures [Unknown]
  - Arthralgia [Recovered/Resolved]

NARRATIVE: CASE EVENT DATE: 20220101
